FAERS Safety Report 9026314 (Version 1)
Quarter: 2012Q4

REPORT INFORMATION
  Report Type: Spontaneous
  Country: US (occurrence: None)
  Receive Date: 20121214
  Receipt Date: 20121214
  Transmission Date: 20130627
  Serious: Yes (Hospitalization)
  Sender: FDA-Public Use
  Company Number: None

PATIENT
  Age: 55 Year
  Sex: Female
  Weight: 96.62 kg

DRUGS (15)
  1. ENBREL [Suspect]
     Indication: RHEUMATOID ARTHRITIS
     Route: 058
     Dates: start: 20120620, end: 20120926
  2. PREDNISONE [Concomitant]
  3. OXYCODONE [Concomitant]
  4. FLUOXETINE [Concomitant]
  5. AMLODIPINE [Concomitant]
  6. ALLOPURINOL [Concomitant]
  7. MORPHINE [Concomitant]
  8. SPIRONOLACTONE [Concomitant]
  9. ARAVA [Concomitant]
  10. LOSARTAN [Concomitant]
  11. FOLIC ACID [Concomitant]
  12. SIMVASTATIN [Concomitant]
  13. KCL [Concomitant]
  14. LASIX [Concomitant]
  15. PREMARIN [Concomitant]

REACTIONS (1)
  - Panniculitis [None]
